FAERS Safety Report 17360195 (Version 1)
Quarter: 2020Q1

REPORT INFORMATION
  Report Type: Spontaneous
  Country: US (occurrence: US)
  Receive Date: 20200203
  Receipt Date: 20200203
  Transmission Date: 20200409
  Serious: Yes (Hospitalization)
  Sender: FDA-Public Use
  Company Number: US-ACCORD-170767

PATIENT
  Age: 48 Year
  Sex: Male
  Weight: 85.7 kg

DRUGS (5)
  1. DAPTOMYCIN. [Suspect]
     Active Substance: DAPTOMYCIN
     Indication: DEVICE RELATED INFECTION
     Dosage: 625 MG IN 0.9 PERCENT NACL  100 MLIVPB
  2. ATORVASTATIN [Concomitant]
     Active Substance: ATORVASTATIN
     Dosage: STRENGTH 80 MG
  3. DAPTOMYCIN. [Suspect]
     Active Substance: DAPTOMYCIN
     Indication: DEVICE RELATED INFECTION
     Dosage: STRENGTH: 500 MG
     Route: 042
     Dates: start: 20190320, end: 20200117
  4. ERTAPENEM/ERTAPENEM SODIUM [Concomitant]
     Active Substance: ERTAPENEM
     Dosage: 1000 MG IN NACL 9 PERCENT 100 ML IVPB MINI BAG PLUS
  5. DAPTOMYCIN. [Suspect]
     Active Substance: DAPTOMYCIN
     Indication: DEVICE RELATED INFECTION
     Dosage: STRENGTH: 500 MG
     Route: 042
     Dates: start: 20200117

REACTIONS (3)
  - Tremor [Recovered/Resolved]
  - Feeling cold [Recovered/Resolved]
  - Chills [Recovered/Resolved]

NARRATIVE: CASE EVENT DATE: 20200109
